FAERS Safety Report 6971290-6 (Version None)
Quarter: 2010Q3

REPORT INFORMATION
  Report Type: 
  Country: None (occurrence: None)
  Receive Date: 20100908
  Receipt Date: 20100826
  Transmission Date: 20110219
  Serious: Yes (Hospitalization)
  Sender: FDA-Public Use
  Company Number: FR-JNJFOC-20100901772

PATIENT
  Sex: Male

DRUGS (2)
  1. ZALDIAR [Suspect]
     Indication: ROTATOR CUFF SYNDROME
     Route: 048
  2. PROPOFAN [Suspect]
     Indication: ROTATOR CUFF SYNDROME
     Route: 048

REACTIONS (3)
  - ATAXIA [None]
  - DIPLOPIA [None]
  - VERTIGO [None]
